FAERS Safety Report 7948654-7 (Version None)
Quarter: 2011Q4

REPORT INFORMATION
  Report Type: 
  Country: None (occurrence: None)
  Receive Date: 20111130
  Receipt Date: 20111130
  Transmission Date: 20120403
  Serious: Yes (Other)
  Sender: FDA-Public Use
  Company Number: None

PATIENT
  Sex: Female
  Weight: 111.13 kg

DRUGS (1)
  1. AVELOX [Suspect]
     Indication: SINUSITIS
     Dosage: ONE TAB
     Route: 048

REACTIONS (3)
  - TENDONITIS [None]
  - NEUROPATHY PERIPHERAL [None]
  - JOINT SWELLING [None]
